FAERS Safety Report 10203884 (Version 1)
Quarter: 2014Q2

REPORT INFORMATION
  Report Type: Report from Study
  Country: US (occurrence: US)
  Receive Date: 20140529
  Receipt Date: 20140529
  Transmission Date: 20141212
  Serious: Yes (Hospitalization)
  Sender: FDA-Public Use
  Company Number: US-CELGENEUS-163-C4047-14053697

PATIENT
  Age: 79 Year
  Sex: Male
  Weight: 89 kg

DRUGS (13)
  1. CC-4047 [Suspect]
     Indication: PLASMA CELL MYELOMA
     Route: 048
     Dates: start: 20130603
  2. CC-4047 [Suspect]
     Dosage: 4 MILLIGRAM
     Route: 048
     Dates: start: 20140421, end: 20140510
  3. CARFILZOMIB [Suspect]
     Indication: PLASMA CELL MYELOMA
     Route: 041
     Dates: start: 20130603
  4. CARFILZOMIB [Suspect]
     Route: 041
     Dates: start: 20140421, end: 20140422
  5. DEXAMETHASONE [Suspect]
     Indication: PLASMA CELL MYELOMA
     Route: 048
     Dates: start: 20130603
  6. DEXAMETHASONE [Suspect]
     Route: 048
     Dates: start: 20140205, end: 20140205
  7. DEXAMETHASONE [Suspect]
     Route: 048
     Dates: start: 20140421, end: 20140422
  8. NOVOLOG FLEXPEN [Concomitant]
     Indication: DIABETES MELLITUS
     Route: 065
     Dates: start: 20130328
  9. LANTUS [Concomitant]
     Indication: DIABETES MELLITUS
     Route: 065
     Dates: start: 20130328
  10. PLAVIX [Concomitant]
     Indication: ANTICOAGULANT THERAPY
     Route: 065
     Dates: start: 20130328
  11. LASIX [Concomitant]
     Indication: HYPERTENSION
     Route: 065
     Dates: start: 20130326
  12. ASPIRIN [Concomitant]
     Indication: ANTICOAGULANT THERAPY
     Route: 065
     Dates: start: 20130328
  13. AMLODIPINE [Concomitant]
     Indication: HYPERTENSION
     Route: 065
     Dates: start: 20130328

REACTIONS (1)
  - Clostridium difficile infection [Unknown]
